FAERS Safety Report 20611530 (Version 1)
Quarter: 2022Q1

REPORT INFORMATION
  Report Type: Spontaneous
  Country: US (occurrence: US)
  Receive Date: 20220318
  Receipt Date: 20220318
  Transmission Date: 20220423
  Serious: No
  Sender: FDA-Public Use
  Company Number: US-GILEAD-2022-0573860

PATIENT
  Age: 63 Year
  Sex: Female

DRUGS (1)
  1. TRODELVY [Suspect]
     Active Substance: SACITUZUMAB GOVITECAN-HZIY
     Indication: Malignant nipple neoplasm
     Route: 065

REACTIONS (2)
  - Laboratory test abnormal [Unknown]
  - Inappropriate schedule of product administration [Unknown]
